FAERS Safety Report 16401690 (Version 3)
Quarter: 2025Q2

REPORT INFORMATION
  Report Type: Spontaneous
  Country: DE (occurrence: DE)
  Receive Date: 20190606
  Receipt Date: 20250515
  Transmission Date: 20250716
  Serious: Yes (Other)
  Sender: TAKEDA
  Company Number: DE-JNJFOC-20190542959

PATIENT
  Age: 48 Year
  Sex: Male

DRUGS (16)
  1. BORTEZOMIB [Suspect]
     Active Substance: BORTEZOMIB
     Indication: Chronic graft versus host disease
  2. RITUXIMAB [Suspect]
     Active Substance: RITUXIMAB
     Indication: Chronic graft versus host disease
  3. RITUXIMAB [Suspect]
     Active Substance: RITUXIMAB
     Indication: Haemolytic anaemia
  4. EVEROLIMUS [Suspect]
     Active Substance: EVEROLIMUS
     Indication: Chronic graft versus host disease
     Dosage: 1 DOSAGE FORM, QD
  5. EVEROLIMUS [Suspect]
     Active Substance: EVEROLIMUS
     Dosage: UNK, QD
  6. PREDNISOLONE [Suspect]
     Active Substance: PREDNISOLONE
     Indication: Chronic graft versus host disease
     Dosage: 2.5 MILLIGRAM/KILOGRAM, QD
  7. PREDNISOLONE [Suspect]
     Active Substance: PREDNISOLONE
     Indication: Haemolytic anaemia
     Dosage: 1 MILLIGRAM/KILOGRAM
  8. PREDNISOLONE [Suspect]
     Active Substance: PREDNISOLONE
     Dosage: 0.25 MILLIGRAM/KILOGRAM
  9. PREDNISOLONE [Suspect]
     Active Substance: PREDNISOLONE
  10. RUXOLITINIB [Suspect]
     Active Substance: RUXOLITINIB
     Indication: Chronic graft versus host disease
     Dosage: 1 DOSAGE FORM, QD
  11. TOCILIZUMAB [Suspect]
     Active Substance: TOCILIZUMAB
     Indication: Chronic graft versus host disease
     Dosage: 1 DOSAGE FORM, MONTHLY
  12. TOCILIZUMAB [Suspect]
     Active Substance: TOCILIZUMAB
  13. TOCILIZUMAB [Suspect]
     Active Substance: TOCILIZUMAB
     Dosage: 1 DOSAGE FORM, MONTHLYUNK
  14. TACROLIMUS [Suspect]
     Active Substance: TACROLIMUS
     Indication: Chronic graft versus host disease
  15. TACROLIMUS [Suspect]
     Active Substance: TACROLIMUS
  16. RUXOLITINIB [Suspect]
     Active Substance: RUXOLITINIB
     Indication: Chronic graft versus host disease
     Dosage: 20 MILLIGRAM, QD

REACTIONS (4)
  - Polyomavirus-associated nephropathy [Recovering/Resolving]
  - Viraemia [Recovering/Resolving]
  - Off label use [Unknown]
  - Product use in unapproved indication [Unknown]
